FAERS Safety Report 4301140-8 (Version None)
Quarter: 2004Q1

REPORT INFORMATION
  Report Type: 
  Country: None (occurrence: None)
  Receive Date: 20040219
  Receipt Date: 20040204
  Transmission Date: 20041129
  Serious: Yes (Death)
  Sender: FDA-Public Use
  Company Number: 2004IM000298

PATIENT
  Age: 50 Year
  Sex: Male

DRUGS (4)
  1. ADVAFERON (A643_INTERFERON ALFACON-1) [Suspect]
     Indication: HEPATITIS C
     Dosage: 18 MU;QD;SUBCUTANEOUS
     Route: 058
     Dates: start: 20020327, end: 20020812
  2. PROHEPARUM [Concomitant]
  3. PROTOPORPHYRIN DISODIUM [Concomitant]
  4. ETHYL  LOFLAZEPATE [Concomitant]

REACTIONS (3)
  - CEREBRAL HAEMORRHAGE [None]
  - EYE HAEMORRHAGE [None]
  - RETINOPATHY [None]
